FAERS Safety Report 12680404 (Version 2)
Quarter: 2017Q3

REPORT INFORMATION
  Report Type: Spontaneous
  Country: US (occurrence: US)
  Receive Date: 20160824
  Receipt Date: 20170919
  Transmission Date: 20171127
  Serious: Yes (Hospitalization)
  Sender: FDA-Public Use
  Company Number: US-GLAXOSMITHKLINE-US2016122165

PATIENT
  Age: 80 Year
  Sex: Male

DRUGS (8)
  1. ANORO ELLIPTA [Suspect]
     Active Substance: UMECLIDINIUM BROMIDE\VILANTEROL TRIFENATATE
     Indication: CHRONIC OBSTRUCTIVE PULMONARY DISEASE
     Dosage: 1 PUFF(S), 1D (62.5/25)
     Route: 055
     Dates: start: 20160518
  2. POTASSIUM CHLORIDE. [Concomitant]
     Active Substance: POTASSIUM CHLORIDE
  3. COREG [Concomitant]
     Active Substance: CARVEDILOL
  4. ZOCOR [Concomitant]
     Active Substance: SIMVASTATIN
  5. ANORO ELLIPTA [Suspect]
     Active Substance: UMECLIDINIUM BROMIDE\VILANTEROL TRIFENATATE
     Dosage: UNK, PRN
  6. ANORO ELLIPTA [Suspect]
     Active Substance: UMECLIDINIUM BROMIDE\VILANTEROL TRIFENATATE
     Dosage: UNK, QOD
  7. LASIX [Concomitant]
     Active Substance: FUROSEMIDE
  8. EFFEXOR [Concomitant]
     Active Substance: VENLAFAXINE HYDROCHLORIDE

REACTIONS (8)
  - Inappropriate schedule of drug administration [Unknown]
  - Drug dose omission [Unknown]
  - Product label confusion [Unknown]
  - Dyspnoea [Unknown]
  - Intentional product misuse [Unknown]
  - Device use error [Unknown]
  - Circumstance or information capable of leading to medication error [Unknown]
  - Drug dispensing error [Unknown]

NARRATIVE: CASE EVENT DATE: 2016
